FAERS Safety Report 5846730-6 (Version None)
Quarter: 2008Q3

REPORT INFORMATION
  Report Type: 
  Country: None (occurrence: None)
  Receive Date: 20080815
  Receipt Date: 20080806
  Transmission Date: 20090109
  Serious: Yes (Other)
  Sender: FDA-Public Use
  Company Number: US-ABBOTT-08P-163-0469415-00

PATIENT
  Sex: Male

DRUGS (15)
  1. DEPAKOTE [Suspect]
     Indication: DEMENTIA
     Dosage: EVERY MORNING AND AT BEDTIME
     Route: 048
     Dates: start: 20070301
  2. DEPAKOTE ER [Suspect]
     Indication: DEMENTIA
     Dosage: EVERY MORNING AND AT BEDTIME
     Route: 048
     Dates: start: 20080731, end: 20080805
  3. DEPAKOTE ER [Suspect]
     Dosage: 250MG EVENT MORNING, 500MG AT BEDTIME
     Route: 048
     Dates: start: 20080805
  4. DEPAKOTE ER [Suspect]
     Dosage: DEPAKOTE DR 250MG QAM, 500MG QHS
     Route: 048
     Dates: start: 20080805
  5. METOPROLOL [Concomitant]
     Indication: BLOOD PRESSURE
     Route: 048
  6. LISINOPRIL [Concomitant]
     Indication: BLOOD PRESSURE
     Route: 048
  7. DONEPEZIL HCL [Concomitant]
     Indication: DEMENTIA
     Route: 048
  8. CLONAZEPAM [Concomitant]
     Indication: ANXIETY
     Dosage: 3 PILLS AT BEDTIME
     Route: 048
  9. TRAZODONE HCL [Concomitant]
     Indication: DEPRESSION
     Dosage: 50MG, 150MG AT BED TIME
     Route: 048
  10. OLANZAPINE [Concomitant]
     Indication: PSYCHOTIC DISORDER
     Dosage: AT BEDTIME
     Route: 048
  11. TYLOX [Concomitant]
     Indication: PAIN
     Route: 048
  12. DIGOXIN [Concomitant]
     Indication: CARDIAC DISORDER
     Route: 048
  13. SIMVASTATIN [Concomitant]
     Indication: BLOOD CHOLESTEROL
     Route: 048
  14. HUMULIN 70/30 [Concomitant]
     Indication: DIABETES MELLITUS
     Route: 050
  15. OMEPRAZOLE MAGNESIUM [Concomitant]
     Indication: GASTRIC DISORDER
     Dosage: 1 PILL EVERY MORNING
     Route: 048

REACTIONS (8)
  - FATIGUE [None]
  - HAEMATOCRIT DECREASED [None]
  - INFECTION [None]
  - INTESTINAL MASS [None]
  - ORCHITIS [None]
  - PYREXIA [None]
  - RENAL IMPAIRMENT [None]
  - SCROTAL SWELLING [None]
